FAERS Safety Report 6310171-8 (Version None)
Quarter: 2009Q3

REPORT INFORMATION
  Report Type: 
  Country: None (occurrence: None)
  Receive Date: 20090814
  Receipt Date: 20090805
  Transmission Date: 20100115
  Serious: Yes (Hospitalization, Other)
  Sender: FDA-Public Use
  Company Number: US-JNJFOC-20090801569

PATIENT
  Sex: Male
  Weight: 85.28 kg

DRUGS (4)
  1. REMICADE [Suspect]
     Indication: COLITIS ULCERATIVE
     Route: 042
  2. CIMZIA [Suspect]
     Indication: COLITIS ULCERATIVE
  3. HUMIRA [Suspect]
     Indication: COLITIS ULCERATIVE
     Route: 050
  4. PREDNISONE [Suspect]
     Indication: COLITIS ULCERATIVE
     Dosage: 10 MG TO 50 MG DAILY
     Route: 048

REACTIONS (6)
  - APPENDIX DISORDER [None]
  - COLONIC POLYP [None]
  - ERYTHEMA NODOSUM [None]
  - METASTATIC NEOPLASM [None]
  - NEPHROLITHIASIS [None]
  - THROMBOSIS [None]
